FAERS Safety Report 5130456-0 (Version None)
Quarter: 2006Q4

REPORT INFORMATION
  Report Type: 
  Country: None (occurrence: None)
  Receive Date: 20061018
  Receipt Date: 20061018
  Transmission Date: 20070319
  Serious: Yes (Hospitalization)
  Sender: FDA-Public Use
  Company Number: None

PATIENT
  Sex: Female
  Weight: 59 kg

DRUGS (2)
  1. CISPLATIN [Suspect]
     Dosage: 116 MG
  2. TAXOTERE [Suspect]
     Dosage: 116 MG

REACTIONS (1)
  - FEBRILE NEUTROPENIA [None]
